FAERS Safety Report 18145134 (Version 4)
Quarter: 2020Q4

REPORT INFORMATION
  Report Type: Spontaneous
  Country: US (occurrence: US)
  Receive Date: 20200813
  Receipt Date: 20201123
  Transmission Date: 20210113
  Serious: No
  Sender: FDA-Public Use
  Company Number: US-PFIZER INC-2020308088

PATIENT
  Age: 62 Year
  Sex: Male

DRUGS (1)
  1. IBRANCE [Suspect]
     Active Substance: PALBOCICLIB
     Indication: INTRADUCTAL PROLIFERATIVE BREAST LESION
     Dosage: 125 MG, CYCLIC (ONCE A DAY FOR 21 DAYS ON EVERY 28 DAYS)
     Dates: start: 20191028

REACTIONS (4)
  - Rash [Unknown]
  - Joint stiffness [Unknown]
  - Product dose omission issue [Unknown]
  - Arthralgia [Unknown]
